FAERS Safety Report 6920075-5 (Version None)
Quarter: 2010Q3

REPORT INFORMATION
  Report Type: 
  Country: None (occurrence: None)
  Receive Date: 20100811
  Receipt Date: 20100809
  Transmission Date: 20110219
  Serious: Yes (Other)
  Sender: FDA-Public Use
  Company Number: CA-PFIZER INC-2010072812

PATIENT
  Age: 28 Year
  Sex: Female
  Weight: 57.596 kg

DRUGS (6)
  1. ZELDOX [Suspect]
     Indication: PSYCHOTIC DISORDER
     Dosage: 40 MG, 1X/DAY IN EVENING
     Route: 048
     Dates: start: 20100603, end: 20100603
  2. ZELDOX [Suspect]
     Dosage: 40MG IN MORNING, 60MG IN EVENING
     Route: 048
     Dates: start: 20100604, end: 20100604
  3. ZELDOX [Suspect]
     Dosage: 60MG IN MORNING, 80MG IN EVENING
     Route: 048
     Dates: start: 20100605, end: 20100605
  4. ZELDOX [Suspect]
     Dosage: 80 MG, 2X/DAY
     Route: 048
     Dates: start: 20100606, end: 20100606
  5. ZELDOX [Suspect]
     Dosage: 80 MG IN MORNING
     Route: 048
     Dates: start: 20100607, end: 20100607
  6. OLANZAPINE [Concomitant]
     Indication: PSYCHOTIC DISORDER
     Dosage: 5 MG, 1X/DAY AT BEDTIME
     Route: 048
     Dates: start: 20091101

REACTIONS (12)
  - ASTHENIA [None]
  - COGNITIVE DISORDER [None]
  - FEELING ABNORMAL [None]
  - FEELING COLD [None]
  - HYPOAESTHESIA [None]
  - IMPAIRED WORK ABILITY [None]
  - MUSCLE TWITCHING [None]
  - MUSCULAR WEAKNESS [None]
  - NAUSEA [None]
  - PALLOR [None]
  - SEDATION [None]
  - SOMNOLENCE [None]
